FAERS Safety Report 8880147 (Version 2)
Quarter: 2012Q4

REPORT INFORMATION
  Report Type: 
  Country: US (occurrence: US)
  Receive Date: 20121031
  Receipt Date: 20121130
  Transmission Date: 20130627
  Serious: Yes (Death)
  Sender: FDA-Public Use
  Company Number: US-ALEXION-A201202010

PATIENT
  Sex: Female

DRUGS (15)
  1. SOLIRIS 300MG [Suspect]
     Indication: PRODUCT USED FOR UNKNOWN INDICATION
     Dosage: 1200 mg, single
     Route: 042
     Dates: start: 201206, end: 201206
  2. TYLENOL [Concomitant]
  3. DULCOLAX [Concomitant]
  4. CELEXA [Concomitant]
  5. COLACE [Concomitant]
  6. NEXIUM [Concomitant]
  7. FENTANYL [Concomitant]
  8. NEURONTIN [Concomitant]
  9. DURAGESIC [Concomitant]
  10. HEPARIN [Concomitant]
  11. INSULIN [Concomitant]
  12. SYNTHROID [Concomitant]
  13. SENOKOT [Concomitant]
  14. ROXICODONE [Concomitant]
  15. PREDNISONE [Concomitant]

REACTIONS (1)
  - Death [Fatal]
